FAERS Safety Report 6518793-6 (Version None)
Quarter: 2009Q4

REPORT INFORMATION
  Report Type: 
  Country: None (occurrence: None)
  Receive Date: 20091228
  Receipt Date: 20091216
  Transmission Date: 20100525
  Serious: Yes (Death, Disabling)
  Sender: FDA-Public Use
  Company Number: JP-BAYER-200915126BYL

PATIENT
  Age: 39 Year
  Sex: Female
  Weight: 51 kg

DRUGS (19)
  1. NEXAVAR [Suspect]
     Indication: HEPATIC NEOPLASM MALIGNANT
     Dosage: UNIT DOSE: 200 MG
     Route: 048
     Dates: start: 20090722, end: 20090728
  2. NEXAVAR [Suspect]
     Dosage: UNIT DOSE: 200 MG
     Route: 048
     Dates: start: 20090729, end: 20090828
  3. MAGMITT [Concomitant]
     Dosage: UNIT DOSE: 330 MG
     Route: 048
     Dates: start: 20090722
  4. DECADRON [Concomitant]
     Dosage: UNIT DOSE: 0.5 MG
     Route: 048
  5. BARACLUDE [Concomitant]
     Dosage: UNIT DOSE: 0.5 MG
     Route: 048
  6. LIVACT [Concomitant]
     Dosage: UNIT DOSE: 4.15 G
     Route: 048
     Dates: end: 20090727
  7. GLAKAY [Concomitant]
     Dosage: UNIT DOSE: 15 MG
     Route: 048
     Dates: end: 20090727
  8. NOVAMIN [Concomitant]
     Dosage: UNIT DOSE: 5 MG
     Route: 048
  9. CYTOTEC [Concomitant]
     Dosage: UNIT DOSE: 200 ?G
     Route: 048
     Dates: end: 20090727
  10. PARIET [Concomitant]
     Dosage: UNIT DOSE: 10 MG
     Route: 048
  11. ALLOID G [Concomitant]
     Route: 048
     Dates: start: 20090727
  12. SALAGEN [Concomitant]
     Dosage: UNIT DOSE: 5 MG
     Route: 048
     Dates: start: 20090727
  13. DUROTEP [Concomitant]
     Dosage: UNIT DOSE: 4.2 MG
     Route: 062
  14. NAIXAN [Concomitant]
     Dosage: UNIT DOSE: 100 MG
     Route: 048
  15. MEXITIL [Concomitant]
     Dosage: UNIT DOSE: 100 MG
     Route: 048
  16. TRYPTANOL [Concomitant]
     Dosage: UNIT DOSE: 10 MG
     Route: 048
  17. GASMOTIN [Concomitant]
     Dosage: UNIT DOSE: 5 MG
     Route: 048
  18. ZOMETA [Concomitant]
     Dosage: FROM BEFORE ADMINISTRATION
     Route: 042
  19. MONILAC [Concomitant]
     Route: 048
     Dates: start: 20090730

REACTIONS (5)
  - APHAGIA [None]
  - DYSPHONIA [None]
  - HEPATIC NEOPLASM MALIGNANT [None]
  - PALMAR-PLANTAR ERYTHRODYSAESTHESIA SYNDROME [None]
  - STOMATITIS [None]
